FAERS Safety Report 12520640 (Version 1)
Quarter: 2016Q2

REPORT INFORMATION
  Report Type: Spontaneous
  Country: US (occurrence: None)
  Receive Date: 20160630
  Receipt Date: 20160630
  Transmission Date: 20160815
  Serious: Yes (Disabling)
  Sender: FDA-Public Use
  Company Number: None

PATIENT
  Age: 63 Year
  Sex: Female
  Weight: 72.58 kg

DRUGS (1)
  1. LISINOPRIL 2.5MG TABLETS, 2.5 MG GENERIC [Suspect]
     Active Substance: LISINOPRIL
     Indication: HYPERTENSION
     Dosage: 1 TABLET(S) TWICE A DAY TAKEN BY MOUTH
     Route: 048
     Dates: start: 20151111, end: 20160602

REACTIONS (3)
  - Therapy change [None]
  - Activities of daily living impaired [None]
  - Cough [None]

NARRATIVE: CASE EVENT DATE: 20160509
